FAERS Safety Report 18160314 (Version 2)
Quarter: 2020Q3

REPORT INFORMATION
  Report Type: Spontaneous
  Country: US (occurrence: US)
  Receive Date: 20200818
  Receipt Date: 20200902
  Transmission Date: 20201103
  Serious: Yes (Other)
  Sender: FDA-Public Use
  Company Number: US-REGENERON PHARMACEUTICALS, INC.-2020-69709

PATIENT

DRUGS (12)
  1. EYLEA [Suspect]
     Active Substance: AFLIBERCEPT
     Dosage: 2MG RIGHT EYE
     Route: 031
     Dates: start: 201911, end: 201911
  2. AMBIEN [Concomitant]
     Active Substance: ZOLPIDEM TARTRATE
     Indication: PRODUCT USED FOR UNKNOWN INDICATION
  3. EYLEA [Suspect]
     Active Substance: AFLIBERCEPT
     Dosage: 3 OR 6 OR 9 MONTHS
     Route: 031
     Dates: start: 2016
  4. EYLEA [Suspect]
     Active Substance: AFLIBERCEPT
     Dosage: 2MG, RIGHT EYE
     Route: 031
     Dates: start: 201906, end: 201906
  5. EYLEA [Suspect]
     Active Substance: AFLIBERCEPT
     Dosage: 2 MG UNK
     Route: 031
     Dates: start: 2006, end: 2006
  6. EYLEA [Suspect]
     Active Substance: AFLIBERCEPT
     Dosage: 2MG, RIGHT EYE
     Route: 031
     Dates: start: 201903, end: 201903
  7. EYLEA [Suspect]
     Active Substance: AFLIBERCEPT
     Dosage: 2 MG
     Route: 031
     Dates: start: 20200810, end: 20200810
  8. EYLEA [Suspect]
     Active Substance: AFLIBERCEPT
     Dosage: RIGHT EYE
     Route: 031
     Dates: start: 20200803, end: 20200803
  9. CHLORAZEPATE [Concomitant]
     Active Substance: CLORAZEPATE DIPOTASSIUM
     Indication: PRODUCT USED FOR UNKNOWN INDICATION
  10. EYLEA [Suspect]
     Active Substance: AFLIBERCEPT
     Indication: NEOVASCULAR AGE-RELATED MACULAR DEGENERATION
     Dosage: 2MG, Q4W, RIGHT EYE
     Route: 031
     Dates: start: 2006
  11. EYLEA [Suspect]
     Active Substance: AFLIBERCEPT
     Dosage: 2MG, EVERY 6 MONTHS, RIGHT EYE
     Route: 031
  12. METOPROLOL. [Concomitant]
     Active Substance: METOPROLOL
     Indication: PRODUCT USED FOR UNKNOWN INDICATION

REACTIONS (7)
  - Hypoacusis [Unknown]
  - Intra-ocular injection complication [Recovered/Resolved]
  - Vitreous floaters [Recovered/Resolved]
  - Eye infection [Recovered/Resolved]
  - Underdose [Unknown]
  - Vision blurred [Unknown]
  - Wrong technique in product usage process [Unknown]

NARRATIVE: CASE EVENT DATE: 2006
